FAERS Safety Report 5650818-2 (Version None)
Quarter: 2008Q1

REPORT INFORMATION
  Report Type: 
  Country: None (occurrence: None)
  Receive Date: 20080304
  Receipt Date: 20080304
  Transmission Date: 20080703
  Serious: Yes (Hospitalization, Disabling)
  Sender: FDA-Public Use
  Company Number: None

PATIENT
  Age: 37 Year
  Sex: Female
  Weight: 88.4514 kg

DRUGS (6)
  1. PLAVIX [Suspect]
     Dosage: 75 MG ONCE DAILY PO
     Route: 048
     Dates: start: 20080201, end: 20080206
  2. LISINOPRIL [Concomitant]
  3. ASPIRIN [Concomitant]
  4. FOLIC ACID [Concomitant]
  5. VITAMIN B-12 [Concomitant]
  6. CYMBALTA [Concomitant]

REACTIONS (9)
  - DIPLOPIA [None]
  - DISORIENTATION [None]
  - FEELING ABNORMAL [None]
  - HEADACHE [None]
  - INFLUENZA [None]
  - MEMORY IMPAIRMENT [None]
  - NAUSEA [None]
  - NECK PAIN [None]
  - PAIN IN EXTREMITY [None]
